FAERS Safety Report 4697346-9 (Version None)
Quarter: 2005Q2

REPORT INFORMATION
  Report Type: 
  Country: None (occurrence: None)
  Receive Date: 20050620
  Receipt Date: 20050602
  Transmission Date: 20051028
  Serious: Yes (Death)
  Sender: FDA-Public Use
  Company Number: DSA_26606_2005

PATIENT
  Age: 66 Year
  Sex: Male

DRUGS (7)
  1. CARDIZEM [Suspect]
     Dosage: 360 MG Q DAY PO
     Route: 048
     Dates: start: 19860821
  2. CORDARONE [Suspect]
     Indication: ARRHYTHMIA
     Dosage: 1.2 G Q DAY PO
     Route: 048
     Dates: start: 19860910, end: 19860913
  3. CAPOTEN [Suspect]
     Indication: ARRHYTHMIA
     Dosage: 75 MG Q DAY PO
     Route: 048
     Dates: start: 19860821, end: 19860915
  4. LIGNOCAINE [Suspect]
     Indication: ARRHYTHMIA
     Dosage: 2.8 MG Q DAY IV
     Route: 042
     Dates: start: 19860908, end: 19860913
  5. UREX [Suspect]
     Dosage: 500 MG Q DAY PO
     Route: 048
  6. ISOTRATE     /AUS/ [Suspect]
     Dosage: 120 MG Q DAY PO
     Route: 048
  7. LANOXIN [Suspect]
     Dosage: 250 MG Q DAY PO
     Route: 048

REACTIONS (1)
  - LICHENOID KERATOSIS [None]
